FAERS Safety Report 24208911 (Version 2)
Quarter: 2024Q3

REPORT INFORMATION
  Report Type: Spontaneous
  Country: FR (occurrence: FR)
  Receive Date: 20240814
  Receipt Date: 20240909
  Transmission Date: 20241016
  Serious: Yes (Other)
  Sender: PFIZER
  Company Number: FR-PFIZER INC-202400230073

PATIENT
  Age: 10 Year
  Sex: Male
  Weight: 25 kg

DRUGS (1)
  1. NGENLA [Suspect]
     Active Substance: SOMATROGON-GHLA
     Indication: Growth hormone deficiency
     Dosage: 16 MG, WEEKLY
     Route: 058
     Dates: start: 202402

REACTIONS (1)
  - Hyperthyroidism [Recovering/Resolving]

NARRATIVE: CASE EVENT DATE: 20240730
